FAERS Safety Report 24194089 (Version 1)
Quarter: 2024Q3

REPORT INFORMATION
  Report Type: Spontaneous
  Country: PL (occurrence: None)
  Receive Date: 20240808
  Receipt Date: 20240808
  Transmission Date: 20241017
  Serious: Yes (unspecified)
  Sender: Public
  Company Number: None

PATIENT
  Age: 67 Year
  Sex: Female
  Weight: 95 kg

DRUGS (1)
  1. TOPAMAX [Suspect]
     Active Substance: TOPIRAMATE
     Indication: Migraine
     Dates: start: 20240727, end: 20240803

REACTIONS (6)
  - Suicidal ideation [None]
  - Decreased appetite [None]
  - Depression [None]
  - Insomnia [None]
  - Sensitive skin [None]
  - Skin burning sensation [None]

NARRATIVE: CASE EVENT DATE: 20240728
